FAERS Safety Report 19953082 (Version 1)
Quarter: 2021Q4

REPORT INFORMATION
  Report Type: Spontaneous
  Country: US (occurrence: US)
  Receive Date: 20211014
  Receipt Date: 20211014
  Transmission Date: 20220303
  Serious: Yes (Hospitalization, Other)
  Sender: FDA-Public Use
  Company Number: US-MLMSERVICE-20210927-3130639-1

PATIENT
  Age: 81 Year
  Sex: Male

DRUGS (5)
  1. LIDOCAINE [Suspect]
     Active Substance: LIDOCAINE
     Indication: Nerve block
     Dosage: 5 ML OF 2% LIDOCAINE
     Dates: start: 202102, end: 202102
  2. ROPIVACAINE. [Interacting]
     Active Substance: ROPIVACAINE HYDROCHLORIDE
     Indication: Nerve block
     Dates: start: 202102, end: 202102
  3. DAPSONE [Interacting]
     Active Substance: DAPSONE
     Indication: Pemphigoid
     Dates: start: 202011, end: 202102
  4. FENTANYL [Concomitant]
     Active Substance: FENTANYL
     Dates: start: 202102
  5. OXYGEN [Concomitant]
     Active Substance: OXYGEN
     Dosage: 6 L, QMN, NASAL CANNULA
     Route: 045
     Dates: start: 202102

REACTIONS (6)
  - Methaemoglobinaemia [Recovered/Resolved]
  - Condition aggravated [Recovered/Resolved]
  - Drug interaction [Recovered/Resolved]
  - Cyanosis [Recovered/Resolved]
  - Tachypnoea [Recovered/Resolved]
  - Hypoxia [Recovered/Resolved]

NARRATIVE: CASE EVENT DATE: 20210201
